FAERS Safety Report 17699697 (Version 3)
Quarter: 2021Q2

REPORT INFORMATION
  Report Type: Spontaneous
  Country: US (occurrence: US)
  Receive Date: 20200423
  Receipt Date: 20210628
  Transmission Date: 20210716
  Serious: Yes (Other)
  Sender: FDA-Public Use
  Company Number: US-GILEAD-2020-0460269

PATIENT
  Sex: Female
  Weight: 68.03 kg

DRUGS (38)
  1. CYANOCOBALAMIN. [Concomitant]
     Active Substance: CYANOCOBALAMIN
  2. GABAPENTIN. [Concomitant]
     Active Substance: GABAPENTIN
  3. AMOXICILLIN. [Concomitant]
     Active Substance: AMOXICILLIN
  4. VALTREX [Concomitant]
     Active Substance: VALACYCLOVIR HYDROCHLORIDE
  5. VIREAD [Suspect]
     Active Substance: TENOFOVIR DISOPROXIL FUMARATE
     Indication: HIV INFECTION
     Dosage: UNK
     Route: 048
     Dates: start: 2005
  6. VIREAD [Suspect]
     Active Substance: TENOFOVIR DISOPROXIL FUMARATE
     Dosage: UNK
     Route: 048
     Dates: start: 2002, end: 2005
  7. TRUVADA [Suspect]
     Active Substance: EMTRICITABINE\TENOFOVIR DISOPROXIL FUMARATE
     Indication: HIV INFECTION
     Dosage: UNK
     Route: 048
     Dates: start: 2005, end: 20130819
  8. ZYRTEC [Concomitant]
     Active Substance: CETIRIZINE HYDROCHLORIDE
  9. TRETINOIN. [Concomitant]
     Active Substance: TRETINOIN
  10. SUMATRIPTAN. [Concomitant]
     Active Substance: SUMATRIPTAN
  11. INDERAL [Concomitant]
     Active Substance: PROPRANOLOL HYDROCHLORIDE
  12. ACYCLOVIR [ACICLOVIR] [Concomitant]
     Active Substance: ACYCLOVIR
  13. OMEPRAZOLE. [Concomitant]
     Active Substance: OMEPRAZOLE
  14. BIKTARVY [Concomitant]
     Active Substance: BICTEGRAVIR SODIUM\EMTRICITABINE\TENOFOVIR ALAFENAMIDE FUMARATE
  15. MIRTAZAPINE. [Concomitant]
     Active Substance: MIRTAZAPINE
  16. PROCHLORPERAZINE. [Concomitant]
     Active Substance: PROCHLORPERAZINE
  17. PROZAC [Concomitant]
     Active Substance: FLUOXETINE HYDROCHLORIDE
  18. HYDROCORTISONE. [Concomitant]
     Active Substance: HYDROCORTISONE
  19. PENICILLIN V POTASSIUM. [Concomitant]
     Active Substance: PENICILLIN V POTASSIUM
  20. EDURANT [Concomitant]
     Active Substance: RILPIVIRINE HYDROCHLORIDE
  21. ERYTHROMYCIN. [Concomitant]
     Active Substance: ERYTHROMYCIN
  22. MINOCYCLINE [Concomitant]
     Active Substance: MINOCYCLINE HYDROCHLORIDE
  23. ZOLPIDEM [Concomitant]
     Active Substance: ZOLPIDEM TARTRATE
  24. PREDNISOLONE. [Concomitant]
     Active Substance: PREDNISOLONE
  25. COLACE [Concomitant]
     Active Substance: DOCUSATE SODIUM
  26. VICODIN [Concomitant]
     Active Substance: ACETAMINOPHEN\HYDROCODONE BITARTRATE
  27. ATORVASTATIN [Concomitant]
     Active Substance: ATORVASTATIN
  28. LORAZEPAM. [Concomitant]
     Active Substance: LORAZEPAM
  29. EMTRIVA [Concomitant]
     Active Substance: EMTRICITABINE
  30. REYATAZ [Concomitant]
     Active Substance: ATAZANAVIR SULFATE
  31. FLUOXETINE [Concomitant]
     Active Substance: FLUOXETINE HYDROCHLORIDE
  32. FLONASE ALLERGY RELIEF [Concomitant]
     Active Substance: FLUTICASONE PROPIONATE
  33. PROVENTIL HFA [SALBUTAMOL] [Concomitant]
  34. QUETIAPINE. [Concomitant]
     Active Substance: QUETIAPINE
  35. ACETAMIN [Concomitant]
     Active Substance: ACETAMINOPHEN
  36. TRAMADOL. [Concomitant]
     Active Substance: TRAMADOL
  37. TIVICAY [Concomitant]
     Active Substance: DOLUTEGRAVIR SODIUM
  38. ODEFSEY [Concomitant]
     Active Substance: EMTRICITABINE\RILPIVIRINE HYDROCHLORIDE\TENOFOVIR ALAFENAMIDE FUMARATE

REACTIONS (25)
  - Fracture [Unknown]
  - Osteoporosis [Unknown]
  - Economic problem [Not Recovered/Not Resolved]
  - Proteinuria [Unknown]
  - Facet joint syndrome [Unknown]
  - Muscle rupture [Unknown]
  - Renal failure [Unknown]
  - Tooth loss [Unknown]
  - Gait disturbance [Unknown]
  - Mobility decreased [Unknown]
  - Bone density decreased [Unknown]
  - Oral pain [Unknown]
  - Osteoarthritis [Unknown]
  - Enthesopathy [Unknown]
  - Lumbar spinal stenosis [Unknown]
  - Pain [Not Recovered/Not Resolved]
  - Facial bones fracture [Unknown]
  - Ankle fracture [Unknown]
  - Chronic kidney disease [Unknown]
  - Osteonecrosis [Unknown]
  - Osteopenia [Unknown]
  - Bone loss [Unknown]
  - Intervertebral disc disorder [Unknown]
  - Emotional distress [Not Recovered/Not Resolved]
  - Tendon disorder [Unknown]
